FAERS Safety Report 5104368-2 (Version None)
Quarter: 2006Q3

REPORT INFORMATION
  Report Type: 
  Country: None (occurrence: None)
  Receive Date: 20060914
  Receipt Date: 20060906
  Transmission Date: 20061208
  Serious: Yes (Other)
  Sender: FDA-Public Use
  Company Number: GB-JNJFOC-20060803429

PATIENT
  Age: 37 Year
  Sex: Male

DRUGS (1)
  1. RISPERDAL [Suspect]
     Indication: SCHIZOPHRENIA
     Route: 065

REACTIONS (11)
  - BLISTER [None]
  - CARDIAC DISORDER [None]
  - FATIGUE [None]
  - FEELING ABNORMAL [None]
  - GASTRIC DISORDER [None]
  - INITIAL INSOMNIA [None]
  - LETHARGY [None]
  - RASH [None]
  - SKIN ULCER [None]
  - SOMNOLENCE [None]
  - WEIGHT INCREASED [None]
